FAERS Safety Report 6023816-7 (Version None)
Quarter: 2008Q4

REPORT INFORMATION
  Report Type: 
  Country: None (occurrence: None)
  Receive Date: 20081230
  Receipt Date: 20081217
  Transmission Date: 20090506
  Serious: Yes (Death)
  Sender: FDA-Public Use
  Company Number: CA-PFIZER INC-2008156890

PATIENT

DRUGS (10)
  1. IRINOTECAN HCL [Suspect]
     Indication: COLORECTAL CANCER METASTATIC
     Dosage: 350 MG ON DAY 1 EVERY 3 WEEKS
     Route: 042
     Dates: start: 20081024, end: 20081205
  2. CAPECITABINE [Suspect]
     Indication: COLORECTAL CANCER METASTATIC
     Dosage: 2150 MG, FOR 14 DAYS EVERY 21 DAYS
     Route: 048
     Dates: start: 20081024, end: 20081214
  3. OXALIPLATIN [Suspect]
     Indication: COLORECTAL CANCER METASTATIC
     Dosage: 219 MG, ON DAY 1 EVERY 3 WEEKS
     Route: 042
     Dates: start: 20081024, end: 20081205
  4. AVASTIN [Suspect]
     Indication: COLORECTAL CANCER METASTATIC
     Dosage: 712.5 MG ON DAY 1 EVERY 3 WEEKS
     Route: 042
     Dates: start: 20081024, end: 20081205
  5. NORVASC [Concomitant]
     Dosage: UNK
     Dates: start: 19980101, end: 20081214
  6. TRIAMTERENE AND HYDROCHLOROTHIAZIDE [Concomitant]
     Dosage: UNK
     Dates: start: 19980101, end: 20081214
  7. ASPIRIN [Concomitant]
     Dosage: UNK
     Dates: start: 20020101, end: 20081214
  8. NABILONE [Concomitant]
     Dosage: UNK
     Dates: start: 20081112, end: 20081214
  9. ZOFRAN [Concomitant]
     Dosage: UNK
     Dates: start: 20081112, end: 20081214
  10. LOPERAMIDE HYDROCHLORIDE [Concomitant]
     Dosage: UNK
     Dates: start: 20081112, end: 20081214

REACTIONS (17)
  - ASTHENIA [None]
  - DEATH [None]
  - DEHYDRATION [None]
  - DIARRHOEA [None]
  - DYSPNOEA [None]
  - FATIGUE [None]
  - FEELING COLD [None]
  - GAIT DISTURBANCE [None]
  - GENERAL PHYSICAL HEALTH DETERIORATION [None]
  - HYPERHIDROSIS [None]
  - HYPOPHAGIA [None]
  - HYPOTENSION [None]
  - INFUSION SITE HAEMORRHAGE [None]
  - MYOCARDIAL INFARCTION [None]
  - NAUSEA [None]
  - PULMONARY EMBOLISM [None]
  - SKIN DISCOLOURATION [None]
